FAERS Safety Report 8880743 (Version 1)
Quarter: 2012Q4

REPORT INFORMATION
  Report Type: 
  Country: US (occurrence: US)
  Receive Date: 20121101
  Receipt Date: 20121101
  Transmission Date: 20130627
  Serious: Yes (Other)
  Sender: FDA-Public Use
  Company Number: US-UCBSA-069885

PATIENT
  Age: 79 Year
  Sex: Female

DRUGS (3)
  1. VIMPAT [Suspect]
     Dosage: DAILY DOSE : 100 MG
     Dates: start: 201201, end: 2012
  2. VIMPAT [Suspect]
     Dosage: DAILY DOSE : 150 MG
     Dates: start: 2012, end: 2012
  3. VIMPAT [Suspect]
     Dosage: DAILY DOSE : 200 MG
     Dates: start: 2012, end: 2012

REACTIONS (2)
  - Stroke in evolution [Unknown]
  - Abdominal discomfort [Recovered/Resolved]
